FAERS Safety Report 7206775-0 (Version None)
Quarter: 2010Q4

REPORT INFORMATION
  Report Type: 
  Country: None (occurrence: None)
  Receive Date: 20101217
  Receipt Date: 20101213
  Transmission Date: 20110411
  Serious: Yes (Other)
  Sender: FDA-Public Use
  Company Number: 2010SP043926

PATIENT
  Age: 51 Year
  Sex: Female

DRUGS (4)
  1. SAPHRIS [Suspect]
     Indication: SCHIZOPHRENIA
     Dosage: 10 MG; ONCE
     Dates: start: 20100812, end: 20100812
  2. GEODON [Concomitant]
  3. SEROQUEL [Concomitant]
  4. PROLIXIN DECANOATE [Concomitant]

REACTIONS (5)
  - CONVERSION DISORDER [None]
  - CONVULSION [None]
  - FALL [None]
  - REFUSAL OF TREATMENT BY PATIENT [None]
  - UNRESPONSIVE TO STIMULI [None]
